FAERS Safety Report 6367505-8 (Version None)
Quarter: 2009Q3

REPORT INFORMATION
  Report Type: 
  Country: None (occurrence: None)
  Receive Date: 20090921
  Receipt Date: 20090910
  Transmission Date: 20100115
  Serious: Yes (Hospitalization)
  Sender: FDA-Public Use
  Company Number: CA-SANOFI-SYNTHELABO-A01200909575

PATIENT
  Sex: Female
  Weight: 56 kg

DRUGS (14)
  1. LEUCOVORIN CALCIUM [Suspect]
     Indication: COLORECTAL CANCER
     Dosage: CUMMULATIVE DOSE 4480 MG
     Route: 041
  2. FAMOTIDINE [Concomitant]
     Dates: start: 20060101
  3. ELTROXIN [Concomitant]
     Dates: start: 20010101
  4. CRESTOR [Concomitant]
     Dates: start: 20060101
  5. ATACAND [Concomitant]
     Dates: start: 20060101
  6. DECADRON [Concomitant]
     Dates: start: 20090521
  7. MOTILIUM [Concomitant]
     Dates: start: 20090521
  8. TYLENOL W/ CODEINE NO. 3 [Concomitant]
     Dates: start: 20090201
  9. FOSAMAX [Concomitant]
     Dates: start: 20080101
  10. GLYBURIDE [Concomitant]
     Dates: start: 20060101
  11. AVE5026 OR PLACEBO [Concomitant]
     Indication: THROMBOSIS PROPHYLAXIS
     Dates: start: 20090521
  12. OXALIPLATIN [Suspect]
     Indication: COLORECTAL CANCER
     Dosage: CUMMULATIVE DOSE 900 MG
     Route: 041
  13. ZOFRAN [Concomitant]
     Dates: start: 20090521
  14. FLUOROURACIL [Suspect]
     Indication: COLORECTAL CANCER
     Dosage: CUMMULATIVE DOSE 8800 BOLUS, 8400 MG INFUSION
     Route: 041

REACTIONS (1)
  - DIABETIC KETOACIDOSIS [None]
